FAERS Safety Report 15891160 (Version 2)
Quarter: 2019Q1

REPORT INFORMATION
  Report Type: Spontaneous
  Country: CA (occurrence: CA)
  Receive Date: 20190130
  Receipt Date: 20190205
  Transmission Date: 20190417
  Serious: Yes (Other)
  Sender: FDA-Public Use
  Company Number: CA-JNJFOC-20190133213

PATIENT
  Age: 16 Year
  Sex: Female

DRUGS (1)
  1. EVICEL [Suspect]
     Active Substance: FIBRINOGEN HUMAN\THROMBIN HUMAN
     Indication: PRODUCT USED FOR UNKNOWN INDICATION
     Route: 061

REACTIONS (6)
  - Pneumothorax [Unknown]
  - Hypertension [Unknown]
  - Tachycardia [Unknown]
  - Chills [Unknown]
  - Pneumomediastinum [Unknown]
  - Pyrexia [Unknown]
